FAERS Safety Report 18137945 (Version 1)
Quarter: 2020Q3

REPORT INFORMATION
  Report Type: Spontaneous
  Country: US (occurrence: US)
  Receive Date: 20200812
  Receipt Date: 20200812
  Transmission Date: 20201103
  Serious: Yes (Life-Threatening, Other)
  Sender: FDA-Public Use
  Company Number: US-TEVA-2020-US-1812772

PATIENT
  Age: 60 Year
  Sex: Female

DRUGS (9)
  1. HEPARIN [Suspect]
     Active Substance: HEPARIN SODIUM
     Indication: THROMBOSIS
  2. WARFARIN [Suspect]
     Active Substance: WARFARIN
     Indication: ANTICOAGULANT THERAPY
  3. FONDAPARINUX [Suspect]
     Active Substance: FONDAPARINUX
     Indication: THROMBOSIS
  4. WARFARIN [Suspect]
     Active Substance: WARFARIN
     Indication: THROMBOSIS
  5. HEPARIN [Suspect]
     Active Substance: HEPARIN SODIUM
     Indication: THROMBOCYTOSIS
     Route: 065
  6. FONDAPARINUX [Suspect]
     Active Substance: FONDAPARINUX
     Indication: ANTICOAGULANT THERAPY
  7. WARFARIN [Suspect]
     Active Substance: WARFARIN
     Indication: THROMBOCYTOSIS
     Route: 065
  8. HEPARIN [Suspect]
     Active Substance: HEPARIN SODIUM
     Indication: ANTICOAGULANT THERAPY
  9. FONDAPARINUX [Suspect]
     Active Substance: FONDAPARINUX
     Indication: THROMBOCYTOSIS
     Route: 065

REACTIONS (4)
  - Heparin-induced thrombocytopenia [Unknown]
  - Skin necrosis [Unknown]
  - Haemorrhage [Unknown]
  - Haematoma [Unknown]
